FAERS Safety Report 9787477 (Version 2)
Quarter: 2014Q2

REPORT INFORMATION
  Report Type: Spontaneous
  Country: NO (occurrence: NO)
  Receive Date: 20131230
  Receipt Date: 20140604
  Transmission Date: 20141212
  Serious: Yes (Disabling)
  Sender: FDA-Public Use
  Company Number: NO-009507513-1312NOR010733

PATIENT
  Sex: Female

DRUGS (20)
  1. TRILAFON [Suspect]
     Indication: PARANOID PERSONALITY DISORDER
     Dosage: STRENGTH 4MG AND 8MG, TOTAL DAILY DOSE 20MG ALSO REPORTED AS 16-24MG DAILY
     Route: 048
     Dates: start: 1996
  2. TRILAFON [Suspect]
     Indication: DEPRESSION
  3. TRILAFON [Suspect]
     Indication: PSYCHOTIC DISORDER
  4. AMLODIPINE [Concomitant]
     Dosage: 1 TABLET DAILY
     Route: 048
  5. ARTHROTEC [Concomitant]
     Indication: PAIN
     Dosage: 1 TABLET 2 TIMES DAILY
     Route: 048
  6. CATAPRESAN [Concomitant]
     Indication: MIGRAINE
     Dosage: 1 TABLET 2 TIMES DAILY
     Route: 048
  7. CIPRALEX [Concomitant]
     Indication: DEPRESSION
     Dosage: 2 TABLETS DAILY
     Route: 048
  8. IBUPROFEN [Concomitant]
     Dosage: 1 TABLET 3 TIMES DAILY
     Route: 048
  9. MELATONIN [Concomitant]
     Dosage: 1-2 TABLETS 1 HOUR BEFORE BEDTIME
     Route: 048
  10. METOPROLOL [Concomitant]
     Indication: CARDIAC DISORDER
     Dosage: 1 TABLET DAILY
     Route: 048
  11. NASONEX [Concomitant]
     Indication: HYPERSENSITIVITY
     Dosage: 2 DOSES 2 TIMES DAILY
     Route: 055
  12. PARACET [Concomitant]
     Dosage: 1 TABLET UP TO 3 TIMES DAILY
     Route: 048
  13. TRISEKVENS [Concomitant]
     Dosage: 1 TABLET DAILY
     Route: 048
  14. VALLERGAN [Concomitant]
     Dosage: 2-3 TABLETS 1 HOUR BEFORE BEDTIME
     Route: 048
  15. CYANOCOBALAMIN [Concomitant]
     Dosage: STRENGTH 1MG/1ML
  16. XENICAL [Concomitant]
     Indication: WEIGHT DECREASED
     Dosage: 1 TABLET 3 TIMES DAILY
     Route: 048
  17. ZOLOFT [Concomitant]
     Dosage: 1 TABLET AT MORNING AND ONE TABLET AT NIGHT
     Route: 048
  18. ZYRTEC [Concomitant]
     Indication: HYPERSENSITIVITY
     Dosage: 1 TABLET DAILY
     Route: 048
  19. MAXALT RAPITAB [Concomitant]
     Indication: MIGRAINE
  20. STILNOCT [Concomitant]
     Indication: SLEEP DISORDER
     Route: 048

REACTIONS (11)
  - Musculoskeletal stiffness [Unknown]
  - Muscle tightness [Unknown]
  - Tremor [Unknown]
  - Dyskinesia [Unknown]
  - Tardive dyskinesia [Unknown]
  - Head titubation [Unknown]
  - Hair growth abnormal [Unknown]
  - Chest pain [Unknown]
  - Overweight [Unknown]
  - Sleep disorder [Unknown]
  - Headache [Unknown]
